FAERS Safety Report 17786393 (Version 1)
Quarter: 2020Q2

REPORT INFORMATION
  Report Type: Spontaneous
  Country: RO (occurrence: RO)
  Receive Date: 20200514
  Receipt Date: 20200514
  Transmission Date: 20200714
  Serious: Yes (Death, Hospitalization, Other)
  Sender: FDA-Public Use
  Company Number: NVSC2020RO129947

PATIENT
  Age: 69 Year
  Sex: Male
  Weight: 87 kg

DRUGS (3)
  1. CARFILZOMIB [Suspect]
     Active Substance: CARFILZOMIB
     Indication: PRODUCT USED FOR UNKNOWN INDICATION
     Dosage: 123 MG
     Route: 065
     Dates: start: 20180806
  2. CARFILZOMIB [Suspect]
     Active Substance: CARFILZOMIB
     Dosage: 44 MG
     Route: 065
  3. DEXAMETHASONE. [Suspect]
     Active Substance: DEXAMETHASONE
     Indication: PRODUCT USED FOR UNKNOWN INDICATION
     Dosage: 20 MG
     Route: 065
     Dates: start: 20180806

REACTIONS (3)
  - Sepsis [Fatal]
  - Hepatotoxicity [Unknown]
  - Pneumonia [Fatal]

NARRATIVE: CASE EVENT DATE: 20190228
